FAERS Safety Report 11291357 (Version 2)
Quarter: 2015Q3

REPORT INFORMATION
  Report Type: Spontaneous
  Country: DE (occurrence: DE)
  Receive Date: 20150722
  Receipt Date: 20150729
  Transmission Date: 20151125
  Serious: Yes (Other)
  Sender: FDA-Public Use
  Company Number: DE-MYLANLABS-2015M1024732

PATIENT

DRUGS (1)
  1. FASTJEKT [Suspect]
     Active Substance: EPINEPHRINE
     Dosage: UNK
     Dates: start: 20150707, end: 20150707

REACTIONS (9)
  - Accidental exposure to product [Recovered/Resolved]
  - Injection site pain [Not Recovered/Not Resolved]
  - Pallor [Recovered/Resolved]
  - Sensory disturbance [Recovered/Resolved]
  - Injection site hypoaesthesia [Recovered/Resolved]
  - Dyspnoea [Recovered/Resolved]
  - Peripheral coldness [Recovered/Resolved]
  - Device failure [Recovered/Resolved]
  - Injection site pallor [Recovered/Resolved]

NARRATIVE: CASE EVENT DATE: 20150707
